FAERS Safety Report 9916567 (Version 1)
Quarter: 2014Q1

REPORT INFORMATION
  Report Type: Spontaneous
  Country: TR (occurrence: None)
  Receive Date: 20140219
  Receipt Date: 20140219
  Transmission Date: 20141002
  Serious: Yes (Disabling)
  Sender: FDA-Public Use
  Company Number: 400208789

PATIENT
  Age: 70 Year
  Sex: Male

DRUGS (1)
  1. CEFUROXIME [Suspect]
     Indication: PROPHYLAXIS
     Dosage: 6 ML (60 MG) TOTAL

REACTIONS (4)
  - Retinal infarction [None]
  - Blindness [None]
  - Corneal oedema [None]
  - Optic atrophy [None]
